FAERS Safety Report 6755443-8 (Version None)
Quarter: 2010Q2

REPORT INFORMATION
  Report Type: 
  Country: None (occurrence: None)
  Receive Date: 20100604
  Receipt Date: 20100527
  Transmission Date: 20101027
  Serious: Yes (Death)
  Sender: FDA-Public Use
  Company Number: US-TYCO HEALTHCARE/MALLINCKRODT-T201001336

PATIENT

DRUGS (1)
  1. OPTIMARK [Suspect]
     Indication: NUCLEAR MAGNETIC RESONANCE IMAGING
     Dosage: 30 ML, SINGLE
     Route: 042
     Dates: start: 20100520, end: 20100520

REACTIONS (3)
  - DEATH [None]
  - DRUG PRESCRIBING ERROR [None]
  - OFF LABEL USE [None]
